FAERS Safety Report 4947150-9 (Version None)
Quarter: 2006Q1

REPORT INFORMATION
  Report Type: 
  Country: None (occurrence: None)
  Receive Date: 20060201
  Receipt Date: 20051208
  Transmission Date: 20060701
  Serious: No
  Sender: FDA-Public Use
  Company Number: 2005PV005605

PATIENT
  Age: 61 Year
  Sex: Male
  Weight: 178.2636 kg

DRUGS (4)
  1. BYETTA [Suspect]
     Indication: DIABETES MELLITUS NON-INSULIN-DEPENDENT
     Dosage: 5 MCG; BID; SC
     Route: 058
     Dates: start: 20051206
  2. LANTUS [Concomitant]
  3. HUMALOG [Concomitant]
  4. RANITIDINE [Concomitant]

REACTIONS (3)
  - NAUSEA [None]
  - RETCHING [None]
  - WEIGHT DECREASED [None]
